FAERS Safety Report 12729220 (Version 3)
Quarter: 2017Q1

REPORT INFORMATION
  Report Type: Report from Study
  Country: TR (occurrence: TR)
  Receive Date: 20160909
  Receipt Date: 20170206
  Transmission Date: 20170428
  Serious: Yes (Death, Life-Threatening, Hospitalization, Other)
  Sender: FDA-Public Use
  Company Number: TR-PFIZER INC-2016419833

PATIENT
  Age: 72 Year
  Sex: Male
  Weight: 70 kg

DRUGS (99)
  1. DIMENHYDRINAT [Concomitant]
     Active Substance: DIMENHYDRINATE
     Indication: ANTIEMETIC SUPPORTIVE CARE
     Dosage: 3/3 MG/ML, 3X/DAY
     Route: 042
     Dates: start: 20160715
  2. DIMENHYDRINAT [Concomitant]
     Active Substance: DIMENHYDRINATE
     Indication: NAUSEA
     Dosage: 3/3 MG/ML, 3X/DAY
     Route: 042
     Dates: start: 20160724, end: 20160724
  3. DIMENHYDRINAT [Concomitant]
     Active Substance: DIMENHYDRINATE
     Dosage: 3/3 MG/ML, 3X/DAY
     Route: 042
     Dates: start: 20160726, end: 20160727
  4. DIMENHYDRINAT [Concomitant]
     Active Substance: DIMENHYDRINATE
     Dosage: 3/3 MG/ML, 1X/DAY
     Route: 042
     Dates: start: 20160716, end: 20160722
  5. LANTUS [Concomitant]
     Active Substance: INSULIN GLARGINE
     Indication: DIABETES MELLITUS
     Dosage: 100 MG/ML, 1X/DAY
     Route: 058
     Dates: start: 20160719
  6. NOVORAPID [Concomitant]
     Active Substance: INSULIN ASPART
     Dosage: 8 IU, 1X/DAY
     Route: 058
     Dates: start: 20160722, end: 20160722
  7. NOVORAPID [Concomitant]
     Active Substance: INSULIN ASPART
     Dosage: 10 IU, 1X/DAY
     Route: 058
     Dates: start: 20160727, end: 20160727
  8. NOVORAPID [Concomitant]
     Active Substance: INSULIN ASPART
     Dosage: 10 IU, 1X/DAY
     Route: 058
     Dates: start: 20160730, end: 20160730
  9. NOVORAPID [Concomitant]
     Active Substance: INSULIN ASPART
     Dosage: 15 IU, 1X/DAY
     Route: 058
     Dates: start: 20160730, end: 20160730
  10. TARKA [Concomitant]
     Active Substance: TRANDOLAPRIL\VERAPAMIL HYDROCHLORIDE
     Indication: HYPERTENSION
     Dosage: 180 MG, 1X/DAY
     Route: 048
     Dates: start: 20160717, end: 20160730
  11. GLIFIX [Concomitant]
     Indication: DIABETES MELLITUS
     Dosage: 30 MG, 1X/DAY
     Route: 048
     Dates: start: 20160504, end: 20160728
  12. KYTRIL [Concomitant]
     Active Substance: GRANISETRON HYDROCHLORIDE
     Indication: NAUSEA
     Dosage: 4 MG, 2X/DAY
     Route: 042
     Dates: start: 20160715, end: 20160716
  13. ENEMA /00200601/ [Concomitant]
     Indication: CONSTIPATION
     Dosage: 135 ML, 1X/DAY
  14. RITUXIMAB [Suspect]
     Active Substance: RITUXIMAB
     Indication: DIFFUSE LARGE B-CELL LYMPHOMA
     Dosage: 375 MG, 1 IN 21 D
     Route: 042
     Dates: start: 20160728
  15. KLOROBEN [Concomitant]
     Indication: PROPHYLAXIS
     Dosage: 600 ML, 3X/DAY
     Dates: start: 20160715
  16. DIMENHYDRINAT [Concomitant]
     Active Substance: DIMENHYDRINATE
     Dosage: 3/3 MG/ML, 1X/DAY
     Route: 042
     Dates: start: 20160730, end: 20160730
  17. NOVORAPID [Concomitant]
     Active Substance: INSULIN ASPART
     Dosage: 10 IU, 1X/DAY
     Route: 058
     Dates: start: 20160726, end: 20160726
  18. NOVORAPID [Concomitant]
     Active Substance: INSULIN ASPART
     Dosage: 16 IU, 1X/DAY
     Route: 058
     Dates: start: 20160731, end: 20160731
  19. NOVORAPID [Concomitant]
     Active Substance: INSULIN ASPART
     Dosage: 6 IU, 1X/DAY
     Route: 058
     Dates: start: 20160801
  20. ESOMEPRAZOLE MAGNESIUM. [Concomitant]
     Active Substance: ESOMEPRAZOLE MAGNESIUM
     Indication: PROPHYLAXIS AGAINST GASTROINTESTINAL ULCER
     Dosage: 80 MG, 2X/DAY
     Route: 042
     Dates: start: 20160715
  21. NOVORAPID [Concomitant]
     Active Substance: INSULIN ASPART
     Indication: DIABETES MELLITUS
     Dosage: 300 MG/ML, 3X/DAY
     Route: 058
     Dates: start: 20160719
  22. NOVORAPID [Concomitant]
     Active Substance: INSULIN ASPART
     Dosage: 6 MS, 1X/DAY
     Route: 058
     Dates: start: 20160718, end: 20160718
  23. NOVORAPID [Concomitant]
     Active Substance: INSULIN ASPART
     Dosage: 18 IU, 1X/DAY
     Route: 058
     Dates: start: 20160716, end: 20160716
  24. TRADOLEX [Concomitant]
     Indication: PELVIC PAIN
  25. OSTEVIT D [Concomitant]
     Dosage: 1500 MG, 1X/DAY
     Route: 048
     Dates: start: 20160725, end: 20160730
  26. METPAMID /00041901/ [Concomitant]
     Dosage: 10 MG, 1X/DAY
     Route: 042
     Dates: start: 20160724, end: 20160724
  27. CALCIUM PICKEN [Concomitant]
     Indication: HYPOCALCAEMIA
     Dosage: 5 ML, 1 IN 2 D
     Route: 042
     Dates: start: 20160725, end: 20160725
  28. FLOTIC [Concomitant]
     Dosage: 200 MG, 1X/DAY
     Route: 042
     Dates: start: 20160731, end: 20160731
  29. PAROL [Concomitant]
     Active Substance: ACETAMINOPHEN
     Indication: PYREXIA
     Dosage: 10 MG, 1X/DAY
     Route: 042
     Dates: start: 20160731, end: 20160731
  30. CYCLOPHOSPHAMIDE. [Suspect]
     Active Substance: CYCLOPHOSPHAMIDE
     Indication: DIFFUSE LARGE B-CELL LYMPHOMA
     Dosage: 1750 MG, 1 IN 21 D
     Route: 042
     Dates: start: 20160729
  31. LANTUS [Concomitant]
     Active Substance: INSULIN GLARGINE
     Dosage: 10 IU, 1X/DAY
     Route: 058
     Dates: start: 20160719, end: 20160719
  32. LANTUS [Concomitant]
     Active Substance: INSULIN GLARGINE
     Dosage: 4 IU, UNK
     Route: 058
     Dates: start: 20160720, end: 20160720
  33. LANTUS [Concomitant]
     Active Substance: INSULIN GLARGINE
     Dosage: 14 IU, 1X/DAY
     Route: 058
     Dates: start: 20160723, end: 20160723
  34. URIKOLIZ [Concomitant]
     Active Substance: ALLOPURINOL
     Dosage: 300 MG, 1X/DAY
     Route: 048
     Dates: start: 20160723, end: 20160731
  35. PULCET [Concomitant]
     Active Substance: PANTOPRAZOLE SODIUM
     Indication: GASTRITIS PROPHYLAXIS
     Dosage: 40 MG, 1X/DAY
     Route: 048
     Dates: start: 20160714, end: 20160715
  36. ALDACTONE [Concomitant]
     Active Substance: SPIRONOLACTONE
     Indication: ASCITES
     Dosage: 25 MG, 1X/DAY
     Route: 042
     Dates: start: 20160715, end: 20160728
  37. BACTRIM [Concomitant]
     Active Substance: SULFAMETHOXAZOLE\TRIMETHOPRIM
     Indication: PNEUMOCYSTIS JIROVECII PNEUMONIA
     Dosage: 800/160 MG/MG, 3 IN 3 D, CYCLIC
     Route: 058
  38. DUPHALAC [Concomitant]
     Active Substance: LACTULOSE
     Indication: CONSTIPATION
     Dosage: 30 ML, 3X/DAY
     Route: 042
     Dates: start: 20160726, end: 20160727
  39. CALCIUM PICKEN [Concomitant]
     Dosage: 5 ML, 1 IN 2 D
     Route: 042
     Dates: start: 20160731
  40. FLOTIC [Concomitant]
     Indication: PNEUMONIA
     Dosage: 400 MG, 2X/DAY
     Route: 042
     Dates: start: 20160715, end: 20160717
  41. BLINDED THERAPY [Suspect]
     Active Substance: INVESTIGATIONAL PRODUCT
     Indication: DIFFUSE LARGE B-CELL LYMPHOMA
     Dosage: 15 MG, DAYS 1-14 IN 21 D
     Route: 048
     Dates: start: 20160728
  42. STABLON [Concomitant]
     Active Substance: TIANEPTINE
     Indication: ANXIETY
     Dosage: 25 MG, 2X/DAY
     Route: 048
     Dates: start: 20160714, end: 20160731
  43. LUMEN [Concomitant]
     Indication: CANDIDA INFECTION
     Dosage: 2/50MG/ML, 3X/DAILY
     Route: 042
     Dates: start: 20160715
  44. LANTUS [Concomitant]
     Active Substance: INSULIN GLARGINE
     Dosage: 20 IU, 1X/DAY
     Route: 058
     Dates: start: 20160730, end: 20160730
  45. NOVORAPID [Concomitant]
     Active Substance: INSULIN ASPART
     Dosage: 16 IU, 1X/DAY
     Route: 058
     Dates: start: 20160721, end: 20160721
  46. TRADOLEX [Concomitant]
     Indication: ABDOMINAL PAIN
     Dosage: 100 MG, 1X/DAY
     Route: 042
     Dates: start: 20160724, end: 20160731
  47. URIKOLIZ [Concomitant]
     Active Substance: ALLOPURINOL
     Indication: PROPHYLAXIS
     Dosage: 300 MG, 1X/DAY
     Route: 048
     Dates: start: 20160725
  48. KEMOPRIM [Concomitant]
     Dosage: 800/160 MG, 2X/DAY
     Route: 048
     Dates: start: 20160731
  49. OSTEVIT D [Concomitant]
     Indication: HYPOCALCAEMIA
     Dosage: UNK, 1X/DAY
     Route: 048
     Dates: start: 20160726
  50. NORODOL [Concomitant]
     Dosage: 5 MG/ML, 2X5
     Route: 048
     Dates: start: 20160728, end: 20160730
  51. CIPRASID [Concomitant]
     Indication: PNEUMONIA
     Dosage: 1000 MG, 2X/DAY
     Route: 048
     Dates: start: 20160718, end: 20160719
  52. CLEXANE [Concomitant]
     Active Substance: ENOXAPARIN SODIUM
     Indication: THROMBOSIS PROPHYLAXIS
     Dosage: 400/0.4 US/MC, 1X/DAY
     Route: 058
     Dates: start: 20160718, end: 20160718
  53. BACTRIM [Concomitant]
     Active Substance: SULFAMETHOXAZOLE\TRIMETHOPRIM
     Indication: PNEUMONIA
     Dosage: 400/80 MG/MG, 3 IN 3 D,, CYCLIC
     Route: 058
  54. AVIL /00085102/ [Concomitant]
     Indication: DRUG HYPERSENSITIVITY
     Dosage: 2 ML, ONCE
     Dates: start: 20160728, end: 20160728
  55. AVIL /00085102/ [Concomitant]
     Dosage: 2 ML, 1X/DAY
     Route: 042
     Dates: start: 20160728, end: 20160729
  56. CALCIMAX /01424301/ [Concomitant]
     Indication: ALLERGY PROPHYLAXIS
     Dosage: 2 ML, ONCE
     Route: 042
     Dates: start: 20160728, end: 20160728
  57. ANESTOL [Concomitant]
     Indication: PROCTALGIA
     Dosage: 20 ML, 2X/DAY
     Route: 061
     Dates: start: 20160726, end: 20160726
  58. ZOLAMID [Concomitant]
     Indication: DELIRIUM
     Dosage: 3.75 MG, 1 IN 4 D
     Route: 042
     Dates: start: 20160731
  59. DOXORUBICIN HCL [Suspect]
     Active Substance: DOXORUBICIN HYDROCHLORIDE
     Indication: DIFFUSE LARGE B-CELL LYMPHOMA
     Dosage: 50 MG, 1 IN 21 D
     Route: 042
     Dates: start: 20160729
  60. VINCRISTINE SULFATE. [Suspect]
     Active Substance: VINCRISTINE SULFATE
     Indication: DIFFUSE LARGE B-CELL LYMPHOMA
     Dosage: 1.4 MG, 1 IN 21 D
     Route: 042
     Dates: start: 20160729
  61. LUMEN [Concomitant]
     Dosage: 2/50MG/ML, 3X/DAILY
     Route: 042
     Dates: start: 20160721
  62. KLOROBEN [Concomitant]
     Dosage: 30 MG, UNK
     Dates: start: 20160715, end: 20160730
  63. EMOJECT [Concomitant]
     Indication: NAUSEA
     Dosage: ONCE
     Route: 042
     Dates: start: 20160730, end: 20160730
  64. NOVORAPID [Concomitant]
     Active Substance: INSULIN ASPART
     Dosage: 4 IU, 1X/DAY
     Route: 058
     Dates: start: 20160720, end: 20160720
  65. NOVORAPID [Concomitant]
     Active Substance: INSULIN ASPART
     Dosage: 8 IU, 1X/DAY
     Route: 058
     Dates: start: 20160720, end: 20160720
  66. ATIVAN [Concomitant]
     Active Substance: LORAZEPAM
     Indication: SLEEP DISORDER
     Dosage: 1 MG, 1X/DAY
     Route: 048
     Dates: start: 20160723, end: 20160730
  67. KEMOPRIM [Concomitant]
     Indication: ANTIFUNGAL PROPHYLAXIS
     Dosage: 800/160 MG, 2X/DAY
     Route: 048
     Dates: start: 20160723, end: 20160725
  68. DEKOL [Concomitant]
     Indication: NAUSEA
     Dosage: 5 ML, 1X/DAY
     Route: 042
     Dates: start: 20160724, end: 20160724
  69. DECOL /00005601/ [Concomitant]
     Indication: NAUSEA
     Dosage: 0.5 ML, 3 IN 3 D, CYCLIC
     Route: 058
     Dates: start: 20160718, end: 20160718
  70. PAROL [Concomitant]
     Active Substance: ACETAMINOPHEN
     Indication: ANXIETY
     Dosage: 25 MG, 1X/DAY
     Route: 048
     Dates: start: 20160722, end: 20160722
  71. PAROL [Concomitant]
     Active Substance: ACETAMINOPHEN
     Indication: DRUG HYPERSENSITIVITY
     Dosage: 10 MG, ONCE
     Route: 042
     Dates: start: 20160731, end: 20160731
  72. PREDNISONE. [Suspect]
     Active Substance: PREDNISONE
     Indication: DIFFUSE LARGE B-CELL LYMPHOMA
     Dosage: 100 MG, 1-5 IN 21 D
     Route: 048
     Dates: start: 20160728
  73. VASTAREL [Concomitant]
     Active Substance: TRIMETAZIDINE DIHYDROCHLORIDE
     Indication: HYPERTENSION
     Dosage: 40 MG, 2X/DAY
     Route: 048
  74. EMOJECT [Concomitant]
     Indication: ANTIEMETIC SUPPORTIVE CARE
     Dosage: 120 MG, 3X/DAY
     Route: 042
     Dates: start: 20160726, end: 20160726
  75. ENOX /01708202/ [Concomitant]
     Indication: THROMBOSIS PROPHYLAXIS
     Dosage: 40 MG, 1X/DAY
     Route: 058
     Dates: start: 20160718, end: 20160731
  76. LANTUS [Concomitant]
     Active Substance: INSULIN GLARGINE
     Dosage: 14 IU, 1X/DAY
     Route: 058
     Dates: start: 20160729, end: 20160729
  77. NOVORAPID [Concomitant]
     Active Substance: INSULIN ASPART
     Dosage: 26 IU, 1X/DAY
     Route: 058
     Dates: start: 20160719, end: 20160719
  78. VALTREX [Concomitant]
     Active Substance: VALACYCLOVIR HYDROCHLORIDE
     Indication: ANTIVIRAL PROPHYLAXIS
     Dosage: 500 MG, 1X/DAY
     Route: 048
     Dates: start: 20160726
  79. METHYLPREDNISOLONE. [Concomitant]
     Active Substance: METHYLPREDNISOLONE
     Indication: DRUG HYPERSENSITIVITY
     Dosage: 20 MG, ONCE
     Route: 042
     Dates: start: 20160728, end: 20160728
  80. PULCET [Concomitant]
     Active Substance: PANTOPRAZOLE SODIUM
     Dosage: 8 MG, 1X/DAY
     Route: 042
     Dates: start: 20160731, end: 20160731
  81. LASIX [Concomitant]
     Active Substance: FUROSEMIDE
     Indication: PLEURAL EFFUSION
     Dosage: 20 MG, 1X/DAY
     Route: 042
     Dates: start: 20160715, end: 20160719
  82. METPAMID /00041901/ [Concomitant]
     Indication: NAUSEA
     Dosage: 30 MG, 3X/DAY
     Route: 042
     Dates: start: 20160715, end: 20160722
  83. BACTRIM [Concomitant]
     Active Substance: SULFAMETHOXAZOLE\TRIMETHOPRIM
     Dosage: 800/160 MG/MG, 2 IN 1 D, CYCLIC
     Route: 058
  84. CONTRAMAL [Concomitant]
     Active Substance: TRAMADOL HYDROCHLORIDE
     Indication: PAIN
     Dosage: 50 MG, ONCE
     Route: 058
     Dates: start: 20160718, end: 20160718
  85. FLOTIC [Concomitant]
     Dosage: 400 MG, 2X/DAY
     Route: 042
     Dates: start: 20160719, end: 20160725
  86. FUNGOSTATIN [Concomitant]
     Indication: PROPHYLAXIS
     Dosage: 100 U/ML, 3X/DAY
     Route: 048
     Dates: start: 20160715, end: 20160730
  87. LANTUS [Concomitant]
     Active Substance: INSULIN GLARGINE
     Dosage: 10 IU, 1X/DAY
     Route: 058
     Dates: start: 20160721, end: 20160721
  88. LANTUS [Concomitant]
     Active Substance: INSULIN GLARGINE
     Dosage: 18 IU, 1X/DAY
     Route: 058
     Dates: start: 20160731, end: 20160731
  89. NOVORAPID [Concomitant]
     Active Substance: INSULIN ASPART
     Dosage: 10 IU, 1X/DAY
     Route: 058
     Dates: start: 20160723, end: 20160723
  90. URIKOLIZ [Concomitant]
     Active Substance: ALLOPURINOL
     Dosage: 600 MG, 2X/DAY
     Route: 048
     Dates: start: 20160716, end: 20160716
  91. KEMOPRIM [Concomitant]
     Dosage: 800/160 MG, 2X/DAY
     Route: 048
     Dates: start: 20160729, end: 20160729
  92. NORODOL [Concomitant]
     Indication: DELIRIUM
     Dosage: 5 MG/ML, 2X5
     Route: 048
     Dates: start: 20160730
  93. TERNAVIR [Concomitant]
     Indication: ANTIVIRAL PROPHYLAXIS
     Dosage: 245 MG, 1X/DAY
     Route: 048
     Dates: start: 20160728, end: 20160730
  94. LASIX [Concomitant]
     Active Substance: FUROSEMIDE
     Dosage: 20/2 MG/ML , 2X/DAY
     Route: 042
     Dates: start: 20160731, end: 20160731
  95. DECORT [Concomitant]
     Indication: DRUG HYPERSENSITIVITY
     Dosage: 8 MG, ONCE
     Route: 042
     Dates: start: 20160728, end: 20160728
  96. MAGNESIUM HYDROXIDE. [Concomitant]
     Active Substance: MAGNESIUM HYDROXIDE
     Indication: CONSTIPATION
     Dosage: 400 MG, 1X/DAY
     Route: 048
  97. PROCTOLOG /02805401/ [Concomitant]
     Indication: PROCTALGIA
     Dosage: 1 APPLICATION, 2X/DAY
     Dates: start: 20160726, end: 20160726
  98. CIPRO [Concomitant]
     Active Substance: CIPROFLOXACIN HYDROCHLORIDE
     Indication: PNEUMONIA
     Dosage: 1000 MG, 2 IN 1 D
     Route: 042
     Dates: start: 20160718, end: 20160718
  99. DORMICUM /00036201/ [Concomitant]
     Active Substance: NITRAZEPAM
     Indication: DELIRIUM
     Dosage: 2 MG/24H, 1X/DAY
     Route: 042
     Dates: start: 20160731

REACTIONS (5)
  - Tumour lysis syndrome [Fatal]
  - Acute kidney injury [Not Recovered/Not Resolved]
  - Sepsis [Not Recovered/Not Resolved]
  - Neoplasm progression [Fatal]
  - Urinary retention [Not Recovered/Not Resolved]

NARRATIVE: CASE EVENT DATE: 20160731
